FAERS Safety Report 7547541-6 (Version None)
Quarter: 2011Q2

REPORT INFORMATION
  Report Type: 
  Country: None (occurrence: None)
  Receive Date: 20110614
  Receipt Date: 20110609
  Transmission Date: 20111010
  Serious: No
  Sender: FDA-Public Use
  Company Number: US-PFIZER INC-2011127618

PATIENT
  Sex: Female
  Weight: 59 kg

DRUGS (2)
  1. CELEBREX [Suspect]
     Indication: SYNOVITIS
     Dosage: 200 MG, DAILY
     Route: 048
     Dates: start: 20110524, end: 20110602
  2. MULTI-VITAMINS [Concomitant]
     Dosage: UNK, DAILY

REACTIONS (3)
  - VOMITING [None]
  - NAUSEA [None]
  - ABDOMINAL DISCOMFORT [None]
